FAERS Safety Report 9257765 (Version 2)
Quarter: 2013Q2

REPORT INFORMATION
  Report Type: Report from Study
  Country: AR (occurrence: AR)
  Receive Date: 20130426
  Receipt Date: 20130502
  Transmission Date: 20140414
  Serious: Yes (Hospitalization, Disabling)
  Sender: FDA-Public Use
  Company Number: AR-ROCHE-1216581

PATIENT
  Age: 47 Year
  Sex: Male

DRUGS (4)
  1. ACTEMRA [Suspect]
     Indication: RHEUMATOID ARTHRITIS
     Route: 042
     Dates: start: 20111001, end: 20130216
  2. METHOTREXATE [Concomitant]
     Indication: RHEUMATOID ARTHRITIS
  3. ACENOCOUMAROL [Concomitant]
     Indication: THROMBOSIS
  4. PARACETAMOL [Concomitant]

REACTIONS (5)
  - Cerebellar infarction [Recovering/Resolving]
  - Deafness unilateral [Not Recovered/Not Resolved]
  - Balance disorder [Not Recovered/Not Resolved]
  - Vertigo [Not Recovered/Not Resolved]
  - Strabismus [Not Recovered/Not Resolved]
